FAERS Safety Report 10157718 (Version 1)
Quarter: 2014Q2

REPORT INFORMATION
  Report Type: Spontaneous
  Country: US (occurrence: US)
  Receive Date: 20140507
  Receipt Date: 20140507
  Transmission Date: 20141212
  Serious: Yes (Congenital Anomaly, Other)
  Sender: FDA-Public Use
  Company Number: PHEH2014US008860

PATIENT
  Sex: Male

DRUGS (4)
  1. TEGRETOL [Suspect]
     Indication: BIPOLAR DISORDER
     Dosage: UNK UKN, UNK
  2. TEGRETOL [Suspect]
     Indication: DEPRESSION
  3. DEPAKOTE [Suspect]
     Indication: BIPOLAR DISORDER
     Dosage: UNK UKN, UNK
  4. DEPAKOTE [Suspect]
     Indication: DEPRESSION

REACTIONS (4)
  - Congenital anomaly [Unknown]
  - Limb deformity [Unknown]
  - Abasia [Unknown]
  - Foetal exposure during pregnancy [Unknown]
